FAERS Safety Report 13111101 (Version 1)
Quarter: 2017Q1

REPORT INFORMATION
  Report Type: Spontaneous
  Country: US (occurrence: US)
  Receive Date: 20170112
  Receipt Date: 20170112
  Transmission Date: 20170428
  Serious: Yes (Hospitalization, Other)
  Sender: FDA-Public Use
  Company Number: US-SHIRE-US201620616

PATIENT
  Age: 85 Year
  Sex: Female
  Weight: 50.34 kg

DRUGS (1)
  1. PENTASA [Suspect]
     Active Substance: MESALAMINE
     Indication: CROHN^S DISEASE
     Dosage: 1000 MG, 3X/DAY:TID
     Route: 048
     Dates: start: 2006

REACTIONS (8)
  - Cerebrovascular accident [Recovered/Resolved]
  - Clostridium difficile infection [Recovered/Resolved]
  - Adverse event [Not Recovered/Not Resolved]
  - Gastrointestinal disorder [Recovered/Resolved]
  - Aphasia [Recovered/Resolved]
  - Product use issue [Not Recovered/Not Resolved]
  - Urinary tract infection [Recovered/Resolved]
  - Asthenia [Recovered/Resolved]

NARRATIVE: CASE EVENT DATE: 2006
